FAERS Safety Report 9310147 (Version 2)
Quarter: 2013Q2

REPORT INFORMATION
  Report Type: Spontaneous
  Country: US (occurrence: US)
  Receive Date: 20130527
  Receipt Date: 20130621
  Transmission Date: 20140414
  Serious: Yes (Hospitalization)
  Sender: FDA-Public Use
  Company Number: US-B.I. PHARMACEUTICALS,INC./RIDGEFIELD-2013-BI-14612BP

PATIENT
  Age: 32 Year
  Sex: Female
  Weight: 65.77 kg

DRUGS (4)
  1. MICARDIS HCT TABLETS [Suspect]
     Indication: BLOOD PRESSURE
     Dosage: STRENTH: 40 MG\ 12.5 MG
     Route: 048
     Dates: start: 20130502, end: 20130512
  2. MICARDIS HCT TABLETS [Suspect]
     Dosage: 80 MG\ 25 MG
     Dates: start: 20130502, end: 20130512
  3. NORVASC [Concomitant]
     Indication: HYPERTENSION
     Dosage: 10 MG
     Dates: start: 20130520
  4. CIPRO [Concomitant]
     Indication: URINARY TRACT INFECTION

REACTIONS (3)
  - Hyponatraemia [Recovered/Resolved]
  - Hypokalaemia [Recovered/Resolved]
  - Adverse drug reaction [Unknown]
